FAERS Safety Report 7678432-8 (Version None)
Quarter: 2011Q3

REPORT INFORMATION
  Report Type: 
  Country: None (occurrence: None)
  Receive Date: 20110811
  Receipt Date: 20110727
  Transmission Date: 20111222
  Serious: No
  Sender: FDA-Public Use
  Company Number: US-B.I. PHARMACEUTICALS,INC./RIDGEFIELD-2011-BP-16554BP

PATIENT
  Age: 95 Year
  Sex: Male
  Weight: 56.8 kg

DRUGS (11)
  1. CITRACIL [Concomitant]
     Dates: start: 20110628
  2. PRADAXA [Suspect]
     Indication: ATRIAL FIBRILLATION
     Dosage: 300 MG
     Route: 048
     Dates: start: 20110601, end: 20110601
  3. SIMVASTATIN [Concomitant]
     Dosage: 10 MG
     Dates: start: 20110628
  4. LISINOPRIL [Concomitant]
     Dosage: 2.5 MG
     Dates: start: 20110628
  5. VITAMIN B-12 [Concomitant]
     Dosage: 500 MCG
     Dates: start: 20110628
  6. COLACE [Concomitant]
     Dates: start: 20110628
  7. METOPROLOL TARTRATE [Concomitant]
     Dosage: 25 MG
     Dates: start: 20110628
  8. VIT C [Concomitant]
     Dates: start: 20110628
  9. FUROSEMIDE [Concomitant]
     Dosage: 20 MG
     Dates: start: 20110628
  10. VIT D [Concomitant]
     Dates: start: 20110628
  11. VIT B COMPLEX [Concomitant]
     Dates: start: 20110628

REACTIONS (3)
  - INTERNATIONAL NORMALISED RATIO INCREASED [None]
  - HAEMATURIA [None]
  - ACTIVATED PARTIAL THROMBOPLASTIN TIME PROLONGED [None]
